FAERS Safety Report 19229145 (Version 2)
Quarter: 2021Q2

REPORT INFORMATION
  Report Type: Report from Study
  Country: CA (occurrence: CA)
  Receive Date: 20210507
  Receipt Date: 20210510
  Transmission Date: 20210717
  Serious: Yes (Other)
  Sender: FDA-Public Use
  Company Number: CA-JNJFOC-20210505009

PATIENT
  Age: 20 Year
  Sex: Male
  Weight: 83 kg

DRUGS (2)
  1. REMICADE [Suspect]
     Active Substance: INFLIXIMAB
     Indication: CROHN^S DISEASE
     Dosage: INFUSION NO.:7 DOSE:415 MG, EVERY4 WEEKS FROM 03?MAY?2021
     Route: 042
     Dates: start: 20201023
  2. REMICADE [Suspect]
     Active Substance: INFLIXIMAB
     Dosage: INFUSION NO.:7 DOSE:415 MG, EVERY4 WEEKS ON 03?MAY?2021
     Route: 042

REACTIONS (4)
  - Abdominal pain [Not Recovered/Not Resolved]
  - Clostridium difficile infection [Unknown]
  - Product use issue [Unknown]
  - Off label use [Unknown]

NARRATIVE: CASE EVENT DATE: 202103
